FAERS Safety Report 5666973-4 (Version None)
Quarter: 2008Q1

REPORT INFORMATION
  Report Type: 
  Country: None (occurrence: None)
  Receive Date: 20080315
  Receipt Date: 20080104
  Transmission Date: 20080703
  Serious: No
  Sender: FDA-Public Use
  Company Number: US-ABBOTT-08P-163-0432733-00

PATIENT
  Sex: Female
  Weight: 57.204 kg

DRUGS (6)
  1. HUMIRA [Suspect]
     Indication: CROHN'S DISEASE
     Route: 058
     Dates: start: 20071123, end: 20071201
  2. HUMIRA [Suspect]
     Dates: start: 20071201
  3. PREDNISONE [Concomitant]
     Indication: CROHN'S DISEASE
     Route: 048
  4. CYANOCOBALAMIN [Concomitant]
     Indication: DRUG USE FOR UNKNOWN INDICATION
     Route: 030
  5. TYLOX [Concomitant]
     Indication: PAIN
     Route: 048
  6. RESTERIL [Concomitant]
     Indication: INSOMNIA
     Route: 048

REACTIONS (4)
  - ARTHRALGIA [None]
  - BACK PAIN [None]
  - FATIGUE [None]
  - PHARYNGOLARYNGEAL PAIN [None]
